FAERS Safety Report 5497402-1 (Version None)
Quarter: 2007Q4

REPORT INFORMATION
  Report Type: 
  Country: None (occurrence: None)
  Receive Date: 20071025
  Receipt Date: 20070319
  Transmission Date: 20080405
  Serious: No
  Sender: FDA-Public Use
  Company Number: US-BRISTOL-MYERS SQUIBB COMPANY-13718713

PATIENT
  Age: 48 Year
  Sex: Female
  Weight: 77 kg

DRUGS (6)
  1. GLUCOPHAGE XR [Suspect]
     Route: 048
  2. PLAVIX [Concomitant]
  3. CELEXA [Concomitant]
  4. AVANDIA [Concomitant]
  5. DANTROLENE SODIUM [Concomitant]
  6. LISINOPRIL [Concomitant]

REACTIONS (1)
  - DIARRHOEA [None]
